FAERS Safety Report 5704179-0 (Version None)
Quarter: 2008Q2

REPORT INFORMATION
  Report Type: 
  Country: None (occurrence: None)
  Receive Date: 20080409
  Receipt Date: 20080229
  Transmission Date: 20081010
  Serious: Yes (Hospitalization, Other)
  Sender: FDA-Public Use
  Company Number: 2008S1003550

PATIENT
  Age: 18 Year
  Sex: Male

DRUGS (1)
  1. BACLOFEN [Suspect]
     Indication: SUICIDE ATTEMPT
     Dosage: 400 MG; ONCE

REACTIONS (5)
  - ACUTE RESPIRATORY FAILURE [None]
  - BRADYCARDIA [None]
  - COMA [None]
  - INTENTIONAL OVERDOSE [None]
  - SUICIDE ATTEMPT [None]
